FAERS Safety Report 5117787-5 (Version None)
Quarter: 2006Q3

REPORT INFORMATION
  Report Type: 
  Country: None (occurrence: None)
  Receive Date: 20060926
  Receipt Date: 20060915
  Transmission Date: 20061208
  Serious: Yes (Death, Other)
  Sender: FDA-Public Use
  Company Number: 2006-02411

PATIENT
  Age: 44 Year
  Sex: Male

DRUGS (1)
  1. VELCADE [Suspect]
     Indication: AMYLOIDOSIS
     Dosage: INTRAVENOUS
     Route: 042
     Dates: start: 20060701, end: 20060901

REACTIONS (5)
  - BACTERIAL SEPSIS [None]
  - DIALYSIS [None]
  - RENAL FAILURE [None]
  - SEPTIC SHOCK [None]
  - SUDDEN DEATH [None]
